FAERS Safety Report 10668273 (Version 2)
Quarter: 2015Q1

REPORT INFORMATION
  Report Type: Spontaneous
  Country: BR (occurrence: BR)
  Receive Date: 20141222
  Receipt Date: 20150120
  Transmission Date: 20150720
  Serious: Yes (Hospitalization)
  Sender: FDA-Public Use
  Company Number: BR-PFIZER INC-2014350529

PATIENT
  Age: 65 Year
  Sex: Male
  Weight: 96 kg

DRUGS (7)
  1. NORVASC [Suspect]
     Active Substance: AMLODIPINE BESYLATE
     Dosage: 5 MG, DAILY
     Route: 048
     Dates: start: 20130328
  2. CYMBALTA [Concomitant]
     Active Substance: DULOXETINE HYDROCHLORIDE
     Indication: PAIN
     Dosage: 2 TABLETS (120 MG), DAILY
     Dates: start: 2004
  3. NORVASC [Suspect]
     Active Substance: AMLODIPINE BESYLATE
     Indication: BLOOD PRESSURE ABNORMAL
     Dosage: UNK
     Dates: start: 2009
  4. AAS [Concomitant]
     Active Substance: ASPIRIN
     Indication: THROMBOSIS PROPHYLAXIS
     Dosage: 1 TABLET, UNK
     Dates: start: 2012
  5. CYMBALTA [Concomitant]
     Active Substance: DULOXETINE HYDROCHLORIDE
     Indication: DEPRESSION
  6. DONARAN RETARD [Concomitant]
     Indication: SLEEP DISORDER
     Dosage: 300 MG (2 TABLETS), UNK
     Dates: start: 2013
  7. GABAPENTINE [Concomitant]
     Active Substance: GABAPENTIN
     Indication: SPINAL DISORDER
     Dosage: 800 MG (2 TABLETS OF 400 MG DAILY), DAILY
     Dates: start: 2013

REACTIONS (1)
  - Cardiac valve disease [Unknown]
